FAERS Safety Report 19694526 (Version 2)
Quarter: 2021Q3

REPORT INFORMATION
  Report Type: Report from Study
  Country: US (occurrence: US)
  Receive Date: 20210812
  Receipt Date: 20210901
  Transmission Date: 20211014
  Serious: Yes (Hospitalization)
  Sender: FDA-Public Use
  Company Number: US-JNJFOC-20210810050

PATIENT
  Age: 85 Year
  Sex: Female
  Weight: 65.9 kg

DRUGS (4)
  1. ADEMPAS [Concomitant]
     Active Substance: RIOCIGUAT
  2. ELIQUIS [Concomitant]
     Active Substance: APIXABAN
  3. XARELTO [Concomitant]
     Active Substance: RIVAROXABAN
  4. SELEXIPAG [Suspect]
     Active Substance: SELEXIPAG
     Indication: PULMONARY ARTERIAL HYPERTENSION
     Route: 048

REACTIONS (7)
  - Vertigo [Unknown]
  - Hypertension [Unknown]
  - Blood glucose increased [Unknown]
  - Nausea [Unknown]
  - Dizziness [Unknown]
  - Vomiting [Unknown]
  - Product dose omission issue [Unknown]

NARRATIVE: CASE EVENT DATE: 20210731
